FAERS Safety Report 15715047 (Version 1)
Quarter: 2018Q4

REPORT INFORMATION
  Report Type: Report from Study
  Country: US (occurrence: US)
  Receive Date: 20181212
  Receipt Date: 20181212
  Transmission Date: 20190205
  Serious: Yes (Hospitalization)
  Sender: FDA-Public Use
  Company Number: US-BAYER-2018-212294

PATIENT
  Age: 70 Year
  Sex: Female

DRUGS (1)
  1. STIVARGA [Suspect]
     Active Substance: REGORAFENIB
     Indication: COLORECTAL CANCER
     Dosage: 160 MG DAILY (21 DAYS ON/7 DAYS OFF )
     Route: 048
     Dates: start: 20181112, end: 20181127

REACTIONS (5)
  - Petechiae [Recovered/Resolved]
  - Therapeutic response unexpected [Not Recovered/Not Resolved]
  - Dehydration [Recovered/Resolved]
  - Blood phosphorus decreased [Recovered/Resolved]
  - Blood sodium decreased [Recovered/Resolved]

NARRATIVE: CASE EVENT DATE: 20181112
